FAERS Safety Report 7141102-9 (Version None)
Quarter: 2010Q4

REPORT INFORMATION
  Report Type: 
  Country: None (occurrence: None)
  Receive Date: 20101202
  Receipt Date: 20101202
  Transmission Date: 20110411
  Serious: Yes (Other)
  Sender: FDA-Public Use
  Company Number: None

PATIENT
  Age: 72 Year
  Sex: Male
  Weight: 72.7 kg

DRUGS (1)
  1. LISINOPRIL [Suspect]

REACTIONS (2)
  - COUGH [None]
  - PAIN [None]
